FAERS Safety Report 9652750 (Version 1)
Quarter: 2013Q4

REPORT INFORMATION
  Report Type: Spontaneous
  Country: US (occurrence: US)
  Receive Date: 20131029
  Receipt Date: 20131029
  Transmission Date: 20140711
  Serious: No
  Sender: FDA-Public Use
  Company Number: US-BIOGENIDEC-2013BI077156

PATIENT
  Sex: Female

DRUGS (9)
  1. TECFIDERA [Suspect]
     Indication: MULTIPLE SCLEROSIS
     Route: 048
     Dates: start: 20130603
  2. ABILIFY [Concomitant]
  3. ADDERALL [Concomitant]
  4. CITALOPRAM HYDROBROMIDE [Concomitant]
  5. CLONAZEPAM [Concomitant]
  6. FEMRING [Concomitant]
  7. MEDROXYPROGESTERONE ACETATE [Concomitant]
  8. OMEPRAZOLE [Concomitant]
  9. MELOXICAM [Concomitant]

REACTIONS (1)
  - Abdominal discomfort [Not Recovered/Not Resolved]
